FAERS Safety Report 8150154-9 (Version None)
Quarter: 2012Q1

REPORT INFORMATION
  Report Type: 
  Country: None (occurrence: None)
  Receive Date: 20120220
  Receipt Date: 20120210
  Transmission Date: 20120608
  Serious: No
  Sender: FDA-Public Use
  Company Number: US-BIOGENIDEC-2012BI005479

PATIENT
  Sex: Female

DRUGS (1)
  1. AVONEX [Suspect]
     Indication: MULTIPLE SCLEROSIS
     Route: 030
     Dates: start: 20090413

REACTIONS (5)
  - VISION BLURRED [None]
  - VISUAL IMPAIRMENT [None]
  - DEPRESSED MOOD [None]
  - DIPLOPIA [None]
  - MUSCULAR WEAKNESS [None]
